FAERS Safety Report 9291596 (Version 1)
Quarter: 2013Q2

REPORT INFORMATION
  Report Type: Spontaneous
  Country: CH (occurrence: CH)
  Receive Date: 20130515
  Receipt Date: 20130515
  Transmission Date: 20140414
  Serious: Yes (Hospitalization)
  Sender: FDA-Public Use
  Company Number: CH-GLAXOSMITHKLINE-B0891631A

PATIENT
  Age: 69 Year
  Sex: Female
  Weight: 163.4 kg

DRUGS (10)
  1. ARIXTRA [Suspect]
     Indication: THROMBOLYSIS
     Dosage: 2.5MG PER DAY
     Route: 058
     Dates: start: 20130324
  2. DAFALGAN [Suspect]
     Indication: BACK PAIN
     Dosage: 1000MG THREE TIMES PER DAY
     Route: 048
  3. LESCOL [Suspect]
     Indication: HYPERCHOLESTEROLAEMIA
     Dosage: 80MG PER DAY
     Route: 048
  4. ACENOCOUMAROL (SINTROM) [Suspect]
     Indication: ARRHYTHMIA SUPRAVENTRICULAR
     Route: 048
     Dates: start: 20120807, end: 20130322
  5. DILZEM [Concomitant]
     Indication: ESSENTIAL HYPERTENSION
     Dosage: 120MG TWICE PER DAY
     Route: 048
  6. ENALAPRIL [Concomitant]
     Indication: ESSENTIAL HYPERTENSION
     Dosage: 2.5MG PER DAY
     Route: 048
  7. TOREM [Concomitant]
     Indication: OEDEMA
     Dosage: 5MG PER DAY
     Route: 048
  8. ANXIOLIT [Concomitant]
     Indication: ANXIETY DISORDER
     Dosage: 7.5MG PER DAY
     Route: 048
  9. KONAKION [Concomitant]
     Indication: HAEMORRHAGIC DISORDER
     Route: 048
     Dates: start: 20130323, end: 20130323
  10. NEXIUM [Concomitant]
     Indication: GASTRIC ULCER HAEMORRHAGE
     Route: 042
     Dates: start: 20130323, end: 20130328

REACTIONS (4)
  - Renal failure acute [Recovered/Resolved]
  - Haematoma [Recovered/Resolved]
  - Hypotension [Recovered/Resolved]
  - Coagulation time prolonged [Recovered/Resolved]
